FAERS Safety Report 7418991-3 (Version None)
Quarter: 2011Q2

REPORT INFORMATION
  Report Type: 
  Country: None (occurrence: None)
  Receive Date: 20110415
  Receipt Date: 20110404
  Transmission Date: 20111010
  Serious: Yes (Disabling, Other)
  Sender: FDA-Public Use
  Company Number: Z0001476A

PATIENT
  Sex: Female
  Weight: 61 kg

DRUGS (3)
  1. ENTECAVIR [Concomitant]
     Dosage: .5MG PER DAY
     Route: 048
     Dates: start: 20090101
  2. ELTROMBOPAG [Suspect]
     Indication: THROMBOCYTOPENIA
     Dosage: 75MG PER DAY
     Route: 048
     Dates: start: 20090616, end: 20090630
  3. TENOFOVIR [Concomitant]
     Dosage: 300MG PER DAY
     Route: 048
     Dates: start: 20081001

REACTIONS (1)
  - VISUAL ACUITY REDUCED [None]
